FAERS Safety Report 16589525 (Version 2)
Quarter: 2019Q3

REPORT INFORMATION
  Report Type: Report from Study
  Country: CA (occurrence: CA)
  Receive Date: 20190718
  Receipt Date: 20190730
  Transmission Date: 20191004
  Serious: Yes (Death)
  Sender: FDA-Public Use
  Company Number: CA-TOLMAR, INC.-2019CA007366

PATIENT

DRUGS (1)
  1. ELIGARD [Suspect]
     Active Substance: LEUPROLIDE ACETATE
     Indication: PROSTATE CANCER
     Dosage: 45 MG, EVERY 6 MONTHS
     Route: 065

REACTIONS (3)
  - Prostate cancer [Fatal]
  - Non-small cell lung cancer metastatic [Fatal]
  - Hormone-refractory prostate cancer [Fatal]
